FAERS Safety Report 7837939-0 (Version None)
Quarter: 2011Q4

REPORT INFORMATION
  Report Type: 
  Country: None (occurrence: None)
  Receive Date: 20111024
  Receipt Date: 20110621
  Transmission Date: 20120403
  Serious: No
  Sender: FDA-Public Use
  Company Number: US-ABBOTT-11P-163-0734478-00

PATIENT
  Sex: Female
  Weight: 160.72 kg

DRUGS (2)
  1. LUPRON DEPOT [Suspect]
     Indication: HAEMORRHAGE
     Dates: start: 20110101
  2. IRON [Concomitant]
     Indication: PRODUCT USED FOR UNKNOWN INDICATION

REACTIONS (2)
  - ASTHENIA [None]
  - FATIGUE [None]
